FAERS Safety Report 7303834-9 (Version None)
Quarter: 2011Q1

REPORT INFORMATION
  Report Type: 
  Country: None (occurrence: None)
  Receive Date: 20110221
  Receipt Date: 20110214
  Transmission Date: 20110831
  Serious: Yes (Other)
  Sender: FDA-Public Use
  Company Number: A0880847B

PATIENT
  Sex: Male
  Weight: 2.5 kg

DRUGS (5)
  1. PRENATAL VITAMINS [Concomitant]
     Route: 064
  2. TOPAMAX [Concomitant]
     Route: 064
     Dates: start: 20090331
  3. WELLBUTRIN [Suspect]
     Dosage: 75MG PER DAY
     Route: 064
     Dates: start: 20071201
  4. OXYCODONE HCL AND ACETAMINOPHEN [Concomitant]
     Route: 064
  5. FLAGYL [Concomitant]
     Dosage: 500MG TWICE PER DAY
     Route: 064
     Dates: start: 20090812

REACTIONS (8)
  - DRUG EXPOSURE DURING PREGNANCY [None]
  - BODY HEIGHT BELOW NORMAL [None]
  - MOBILITY DECREASED [None]
  - DEVELOPMENTAL DELAY [None]
  - INABILITY TO CRAWL [None]
  - ASTHENIA [None]
  - PILONIDAL CYST CONGENITAL [None]
  - SMALL FOR DATES BABY [None]
